FAERS Safety Report 4675386-3 (Version None)
Quarter: 2005Q2

REPORT INFORMATION
  Report Type: 
  Country: None (occurrence: None)
  Receive Date: 20050527
  Receipt Date: 20050214
  Transmission Date: 20051028
  Serious: Yes (Other)
  Sender: FDA-Public Use
  Company Number: US-BRISTOL-MYERS SQUIBB COMPANY-12862231

PATIENT
  Age: 9 Year
  Sex: Male

DRUGS (3)
  1. ABILIFY [Suspect]
     Indication: BIPOLAR DISORDER
     Dates: start: 20050126, end: 20050210
  2. RISPERDAL [Suspect]
  3. CONCERTA [Concomitant]

REACTIONS (1)
  - TARDIVE DYSKINESIA [None]
